FAERS Safety Report 10035336 (Version 2)
Quarter: 2014Q2

REPORT INFORMATION
  Report Type: Spontaneous
  Country: US (occurrence: US)
  Receive Date: 20140325
  Receipt Date: 20140619
  Transmission Date: 20141212
  Serious: Yes (Other)
  Sender: FDA-Public Use
  Company Number: US-PFIZER INC-2014077628

PATIENT
  Age: 73 Year
  Sex: Female

DRUGS (7)
  1. LIPITOR [Suspect]
     Indication: LOW DENSITY LIPOPROTEIN INCREASED
     Dosage: 10 MG, DAILY
     Route: 048
     Dates: start: 1997, end: 2003
  2. LIPITOR [Suspect]
     Indication: CARDIOVASCULAR EVENT PROPHYLAXIS
     Dosage: 20 MG, DAILY
     Route: 048
     Dates: start: 2003, end: 2005
  3. LIPITOR [Suspect]
     Dosage: 40 MG, DAILY
     Route: 048
     Dates: start: 2005, end: 2007
  4. ZESTRIL [Concomitant]
     Indication: CARDIOVASCULAR DISORDER
     Dosage: UNK
     Dates: start: 1998
  5. NEURONTIN [Concomitant]
     Indication: NEUROPATHY PERIPHERAL
     Dosage: 800 MG, UNK
     Dates: start: 2005, end: 2012
  6. COZAAR [Concomitant]
     Indication: CARDIAC DISORDER
     Dosage: 100 MG, UNK
     Dates: start: 2006
  7. COZAAR [Concomitant]
     Indication: BLOOD PRESSURE

REACTIONS (1)
  - Type 2 diabetes mellitus [Not Recovered/Not Resolved]
